FAERS Safety Report 13795906 (Version 1)
Quarter: 2017Q3

REPORT INFORMATION
  Report Type: Spontaneous
  Country: US (occurrence: US)
  Receive Date: 20170726
  Receipt Date: 20170726
  Transmission Date: 20171127
  Serious: Yes (Other)
  Sender: FDA-Public Use
  Company Number: US-ESPERO PHARMACEUTICALS-ESP201707-000080

PATIENT
  Age: 51 Year
  Sex: Female

DRUGS (1)
  1. NITROGLYCERIN. [Suspect]
     Active Substance: NITROGLYCERIN
     Route: 060

REACTIONS (4)
  - Hypertensive emergency [Recovered/Resolved]
  - Cardiopulmonary failure [Recovered/Resolved]
  - Pulmonary oedema [Recovered/Resolved]
  - Anaphylactic reaction [Recovered/Resolved]
